FAERS Safety Report 20514477 (Version 2)
Quarter: 2022Q1

REPORT INFORMATION
  Report Type: Report from Study
  Country: CA (occurrence: CA)
  Receive Date: 20220224
  Receipt Date: 20220310
  Transmission Date: 20220423
  Serious: Yes (Death, Life-Threatening, Other)
  Sender: FDA-Public Use
  Company Number: CA-JNJFOC-20220235041

PATIENT
  Age: 74 Year
  Sex: Female

DRUGS (6)
  1. EPOPROSTENOL SODIUM [Suspect]
     Active Substance: EPOPROSTENOL SODIUM
     Indication: Pulmonary hypertension
     Route: 042
     Dates: start: 20191106
  2. EPOPROSTENOL SODIUM [Suspect]
     Active Substance: EPOPROSTENOL SODIUM
     Route: 042
     Dates: start: 20191106, end: 20220301
  3. MACITENTAN [Suspect]
     Active Substance: MACITENTAN
     Indication: Pulmonary hypertension
     Route: 048
     Dates: start: 20200102, end: 20220301
  4. SENOKOT [Concomitant]
     Active Substance: SENNOSIDES
  5. TYLENOL [Concomitant]
     Active Substance: ACETAMINOPHEN
  6. OXAZEPAM [Concomitant]
     Active Substance: OXAZEPAM

REACTIONS (7)
  - Death [Fatal]
  - Syncope [Unknown]
  - Dyspnoea [Unknown]
  - Medication error [Unknown]
  - Hypoacusis [Unknown]
  - Fatigue [Unknown]
  - Infusion site infection [Recovered/Resolved]

NARRATIVE: CASE EVENT DATE: 20220201
